FAERS Safety Report 8093771-7 (Version None)
Quarter: 2012Q1

REPORT INFORMATION
  Report Type: 
  Country: None (occurrence: None)
  Receive Date: 20120129
  Receipt Date: 20111018
  Transmission Date: 20120608
  Serious: No
  Sender: FDA-Public Use
  Company Number: US-ABBOTT-11P-163-0866137-00

PATIENT
  Sex: Female
  Weight: 60.836 kg

DRUGS (6)
  1. PROGESTERONE [Concomitant]
     Indication: HORMONE REPLACEMENT THERAPY
  2. TESTOSTERONE [Concomitant]
     Indication: HORMONE REPLACEMENT THERAPY
     Dosage: GEL ON WRIST
  3. MULTI-VITAMINS [Concomitant]
     Indication: VITAMIN SUPPLEMENTATION
  4. HUMIRA [Suspect]
     Route: 058
     Dates: start: 20110501
  5. HUMIRA [Suspect]
     Indication: CROHN'S DISEASE
     Route: 058
     Dates: start: 20110401, end: 20110401
  6. HUMIRA [Suspect]
     Route: 058
     Dates: start: 20110501, end: 20110501

REACTIONS (1)
  - ALOPECIA [None]
